FAERS Safety Report 20890599 (Version 2)
Quarter: 2022Q2

REPORT INFORMATION
  Report Type: Spontaneous
  Country: US (occurrence: US)
  Receive Date: 20220530
  Receipt Date: 20220614
  Transmission Date: 20220721
  Serious: No
  Sender: FDA-Public Use
  Company Number: US-AMGEN-USASP2022089509

PATIENT
  Sex: Female

DRUGS (4)
  1. REPATHA [Suspect]
     Active Substance: EVOLOCUMAB
     Indication: Psoriatic arthropathy
     Dosage: UNK
     Route: 065
  2. OTEZLA [Suspect]
     Active Substance: APREMILAST
     Indication: Psoriatic arthropathy
     Dosage: UNK
     Route: 065
  3. HUMIRA [Concomitant]
     Active Substance: ADALIMUMAB
     Dosage: UNK UNK, UNK
     Route: 065
  4. METHOTREXATE [Concomitant]
     Active Substance: METHOTREXATE
     Dosage: UNK
     Route: 065

REACTIONS (2)
  - Drug intolerance [Unknown]
  - Inappropriate schedule of product administration [Unknown]
